FAERS Safety Report 20038418 (Version 1)
Quarter: 2021Q4

REPORT INFORMATION
  Report Type: Spontaneous
  Country: US (occurrence: US)
  Receive Date: 20211105
  Receipt Date: 20211105
  Transmission Date: 20220303
  Serious: Yes (Disabling, Other)
  Sender: FDA-Public Use
  Company Number: US-NOVARTISPH-NVSC2021US248154

PATIENT
  Age: 71 Year
  Sex: Female
  Weight: 62.14 kg

DRUGS (1)
  1. RECLAST [Suspect]
     Active Substance: ZOLEDRONIC ACID
     Indication: Osteoporosis
     Dosage: 1 ML, ONCE/SINGLE
     Route: 065
     Dates: start: 20210924, end: 20211027

REACTIONS (5)
  - Diplopia [Not Recovered/Not Resolved]
  - VIth nerve paralysis [Unknown]
  - Fatigue [Unknown]
  - Nausea [Unknown]
  - Vomiting [Unknown]

NARRATIVE: CASE EVENT DATE: 20211009
